FAERS Safety Report 8515456-2 (Version None)
Quarter: 2012Q3

REPORT INFORMATION
  Report Type: 
  Country: None (occurrence: None)
  Receive Date: 20120705
  Receipt Date: 20120619
  Transmission Date: 20120928
  Serious: Yes (Hospitalization)
  Sender: FDA-Public Use
  Company Number: TPA2012A03161

PATIENT
  Age: 63 Year
  Sex: Female

DRUGS (10)
  1. EPADEL (ETHYL ICOSAPENTATE) [Concomitant]
  2. LIPIDIL (FENOFIERATE) [Concomitant]
  3. LISPINE (DISOPYRAMIDE) [Concomitant]
  4. FEBURIC (FEBUXOSTAT) [Suspect]
     Indication: HYPERURICAEMIA
     Dosage: 10 MG (10 MG,1 IN 1 D) PER ORAL
     Route: 048
     Dates: start: 20111213, end: 20120410
  5. CARVEDILOL [Suspect]
     Indication: HYPERTENSION
     Dosage: PER ORAL
     Route: 048
     Dates: end: 20120410
  6. URALYT( MAGNESIUM PHOSPHATE, SOLIDAGO VIRGAUREA, ARNICA MONTANA EXTRAC [Concomitant]
  7. FERROUS CITRATE [Concomitant]
  8. MAGMITT (MAGNESIUM OXIDE) [Concomitant]
  9. URSO 250 [Concomitant]
  10. PREDNISOLONE [Concomitant]

REACTIONS (3)
  - HEPATIC FUNCTION ABNORMAL [None]
  - PLATELET COUNT DECREASED [None]
  - LIPIDS INCREASED [None]
